FAERS Safety Report 6577102-7 (Version None)
Quarter: 2010Q1

REPORT INFORMATION
  Report Type: 
  Country: None (occurrence: None)
  Receive Date: 20100210
  Receipt Date: 20100204
  Transmission Date: 20100710
  Serious: Yes (Hospitalization)
  Sender: FDA-Public Use
  Company Number: IN-SANOFI-AVENTIS-2010SA006818

PATIENT
  Sex: Female

DRUGS (1)
  1. CLEXANE [Suspect]
     Indication: PROPHYLAXIS
     Route: 058
     Dates: start: 20100124, end: 20100128

REACTIONS (4)
  - BLADDER DISORDER [None]
  - EXTRADURAL HAEMATOMA [None]
  - GASTROINTESTINAL DISORDER [None]
  - HYPOAESTHESIA [None]
